FAERS Safety Report 11340382 (Version 1)
Quarter: 2015Q3

REPORT INFORMATION
  Report Type: Spontaneous
  Country: US (occurrence: None)
  Receive Date: 20150803
  Receipt Date: 20150803
  Transmission Date: 20151125
  Serious: Yes (Hospitalization)
  Sender: FDA-Public Use
  Company Number: None

PATIENT
  Age: 72 Year
  Sex: Male

DRUGS (1)
  1. WARFARIN [Suspect]
     Active Substance: WARFARIN
     Indication: ANTICOAGULANT THERAPY
     Route: 048
     Dates: end: 20140814

REACTIONS (4)
  - Haemoglobin decreased [None]
  - Diarrhoea haemorrhagic [None]
  - Hypotension [None]
  - International normalised ratio increased [None]

NARRATIVE: CASE EVENT DATE: 20140814
